FAERS Safety Report 17134032 (Version 1)
Quarter: 2019Q4

REPORT INFORMATION
  Report Type: Spontaneous
  Country: ES (occurrence: ES)
  Receive Date: 20191210
  Receipt Date: 20191210
  Transmission Date: 20200122
  Serious: Yes (Hospitalization, Other)
  Sender: FDA-Public Use
  Company Number: ES-SAMSUNG BIOEPIS-SB-2019-36240

PATIENT
  Age: 74 Year
  Sex: Female

DRUGS (6)
  1. ETANERCEPT [Suspect]
     Active Substance: ETANERCEPT
     Indication: FAMILIAL MEDITERRANEAN FEVER
     Dosage: 50 MG, WEEKLY
     Route: 058
     Dates: start: 201509
  2. COLCHICINE. [Concomitant]
     Active Substance: COLCHICINE
     Indication: CHRONIC KIDNEY DISEASE
  3. DARBEPOETIN ALFA [Suspect]
     Active Substance: DARBEPOETIN ALFA
     Indication: NEPHROGENIC ANAEMIA
     Dosage: 150 MG, UNK (EVERY 8 WEEKS)
     Route: 058
     Dates: start: 201709
  4. COLCHICINE. [Concomitant]
     Active Substance: COLCHICINE
     Indication: FAMILIAL MEDITERRANEAN FEVER
     Dosage: 0.5 MILLIGRAM, QD
     Route: 065
  5. CANAKINUMAB. [Concomitant]
     Active Substance: CANAKINUMAB
     Dosage: 150 MILLIGRAM, Q2MO
     Route: 058
     Dates: start: 201709
  6. COLCHICINE. [Concomitant]
     Active Substance: COLCHICINE
     Indication: HYPERTENSIVE HEART DISEASE

REACTIONS (5)
  - Cardiac failure [Unknown]
  - Neutrophilia [Not Recovered/Not Resolved]
  - Drug ineffective [Unknown]
  - Product use in unapproved indication [Unknown]
  - C-reactive protein increased [Not Recovered/Not Resolved]

NARRATIVE: CASE EVENT DATE: 2017
